FAERS Safety Report 17636110 (Version 1)
Quarter: 2020Q2

REPORT INFORMATION
  Report Type: Spontaneous
  Country: US (occurrence: US)
  Receive Date: 20200403
  Receipt Date: 20200403
  Transmission Date: 20200713
  Serious: No
  Sender: FDA-Public Use
  Company Number: None

PATIENT
  Age: 53 Year
  Sex: Male

DRUGS (3)
  1. FUROSEMIDE. [Concomitant]
     Active Substance: FUROSEMIDE
  2. EPCLUSA [Suspect]
     Active Substance: SOFOSBUVIR\VELPATASVIR
     Dosage: ?          OTHER DOSE:400MG-100MG;OTHER FREQUENCY:OTHER;?
     Route: 048
     Dates: start: 202001, end: 202004
  3. SPIRONOLACTONE. [Concomitant]
     Active Substance: SPIRONOLACTONE

REACTIONS (7)
  - Nausea [None]
  - Constipation [None]
  - Muscle spasms [None]
  - Confusional state [None]
  - Incoherent [None]
  - Speech disorder [None]
  - Lethargy [None]

NARRATIVE: CASE EVENT DATE: 20200403
